FAERS Safety Report 16062567 (Version 2)
Quarter: 2019Q2

REPORT INFORMATION
  Report Type: Spontaneous
  Country: FR (occurrence: FR)
  Receive Date: 20190312
  Receipt Date: 20190514
  Transmission Date: 20190711
  Serious: Yes (Other)
  Sender: FDA-Public Use
  Company Number: FR-BAYER-2019-048604

PATIENT
  Age: 53 Year
  Sex: Female

DRUGS (2)
  1. PROPRANOLOL [Concomitant]
     Active Substance: PROPRANOLOL HYDROCHLORIDE
     Dosage: DAILY DOSE 60 MG
  2. BETAFERON [Suspect]
     Active Substance: INTERFERON BETA-1B
     Indication: RELAPSING-REMITTING MULTIPLE SCLEROSIS
     Dosage: UNK UNK, Q3WK
     Route: 058
     Dates: start: 1999

REACTIONS (3)
  - Coronary arterial stent insertion [None]
  - Coronary artery insufficiency [Recovered/Resolved]
  - Chest pain [None]

NARRATIVE: CASE EVENT DATE: 201902
